FAERS Safety Report 13984521 (Version 1)
Quarter: 2017Q3

REPORT INFORMATION
  Report Type: Spontaneous
  Country: US (occurrence: US)
  Receive Date: 20170918
  Receipt Date: 20170918
  Transmission Date: 20171128
  Serious: Yes (Hospitalization)
  Sender: FDA-Public Use
  Company Number: US-CELGENEUS-USA-20170904032

PATIENT
  Sex: Female
  Weight: 15.89 kg

DRUGS (4)
  1. THALOMID [Suspect]
     Active Substance: THALIDOMIDE
     Dosage: 5 MILLILITER
     Route: 065
     Dates: start: 20170117, end: 201701
  2. SABRIL [Concomitant]
     Active Substance: VIGABATRIN
     Indication: PRODUCT USED FOR UNKNOWN INDICATION
     Route: 065
  3. THALOMID [Suspect]
     Active Substance: THALIDOMIDE
     Indication: BRAIN NEOPLASM MALIGNANT
     Dosage: 50 MILLIGRAM
     Route: 065
     Dates: start: 201605
  4. THALOMID [Suspect]
     Active Substance: THALIDOMIDE
     Dosage: 5 MILLILITER
     Route: 065
     Dates: start: 201709

REACTIONS (1)
  - Respiratory tract infection [Unknown]
